FAERS Safety Report 23979823 (Version 1)
Quarter: 2024Q2

REPORT INFORMATION
  Report Type: Report from Study
  Country: BR (occurrence: BR)
  Receive Date: 20240616
  Receipt Date: 20240616
  Transmission Date: 20240716
  Serious: Yes (Other)
  Sender: FDA-Public Use
  Company Number: BR-ABBVIE-5799682

PATIENT
  Sex: Female
  Weight: 64 kg

DRUGS (11)
  1. RINVOQ [Suspect]
     Active Substance: UPADACITINIB
     Indication: Rheumatoid arthritis
     Dosage: ONE TABLET
     Route: 048
     Dates: start: 20210929
  2. OLMESARTAN [Concomitant]
     Active Substance: OLMESARTAN
     Indication: Hypertension
     Dosage: 20MG/5MG?START DATE TEXT: OVER 8 YEARS
     Route: 048
  3. METHOTREXATE [Concomitant]
     Active Substance: METHOTREXATE
     Indication: Rheumatoid arthritis
     Dosage: FORM STRENGTH: 2.5MG
     Route: 048
     Dates: start: 2019
  4. INDAPAMIDE [Concomitant]
     Active Substance: INDAPAMIDE
     Indication: Hypertension
     Dosage: 1.5 MILLIGRAM?FORM STRENGTH: 1.5MG
     Route: 048
     Dates: start: 202308
  5. ACYCLOVIR [Concomitant]
     Active Substance: ACYCLOVIR
     Indication: Herpes virus infection
     Dosage: START DATE TEXT: BETWEEN MARCH AND APRIL 2024
     Route: 061
  6. ACYCLOVIR [Concomitant]
     Active Substance: ACYCLOVIR
     Indication: Herpes virus infection
     Dosage: 1 TABLET?START DATE TEXT: BETWEEN MARCH AND APRIL 2024
     Route: 048
  7. METRIZAMIDE [Concomitant]
     Active Substance: METRIZAMIDE
     Indication: Hypertension
     Dosage: 20MG/5MG?START DATE TEXT: OVER 8 YEARS
     Route: 048
  8. HYALURONIC ACID [Concomitant]
     Active Substance: HYALURONIC ACID
     Indication: Product used for unknown indication
     Dosage: 40MG/500MG
  9. CHONDROITIN [Concomitant]
     Active Substance: CHONDROITIN
     Indication: Product used for unknown indication
     Dosage: 600MG
  10. CALCIUM CITRATE [Concomitant]
     Active Substance: CALCIUM CITRATE
     Indication: Product used for unknown indication
     Dosage: 250 MG
  11. VITAMIN D [Concomitant]
     Active Substance: VITAMIN D NOS
     Indication: Product used for unknown indication
     Dosage: 2000 IU

REACTIONS (13)
  - Haemorrhoids [Recovered/Resolved]
  - Osteoarthritis [Unknown]
  - Chondropathy [Unknown]
  - Abdominal wall disorder [Not Recovered/Not Resolved]
  - Arthralgia [Not Recovered/Not Resolved]
  - Weight increased [Not Recovered/Not Resolved]
  - Herpes virus infection [Recovered/Resolved]
  - Gait disturbance [Unknown]
  - Rectal prolapse [Recovered/Resolved]
  - Nervousness [Unknown]
  - Hepatic steatosis [Unknown]
  - Pain [Unknown]
  - Unevaluable event [Not Recovered/Not Resolved]

NARRATIVE: CASE EVENT DATE: 20210101
